FAERS Safety Report 12521799 (Version 1)
Quarter: 2016Q3

REPORT INFORMATION
  Report Type: Spontaneous
  Country: US (occurrence: US)
  Receive Date: 20160701
  Receipt Date: 20160701
  Transmission Date: 20161109
  Serious: No
  Sender: FDA-Public Use
  Company Number: US-MAYNE PHARMA-2015MYN000046

PATIENT
  Sex: Female

DRUGS (1)
  1. DOXYCYCLINE HYCLATE DELAYED-REL TABLET [Suspect]
     Active Substance: DOXYCYCLINE HYCLATE
     Indication: ACNE CYSTIC
     Dosage: UNK

REACTIONS (4)
  - Drug effect decreased [Not Recovered/Not Resolved]
  - Product physical issue [Not Recovered/Not Resolved]
  - Product difficult to swallow [Not Recovered/Not Resolved]
  - Product solubility abnormal [Not Recovered/Not Resolved]
